FAERS Safety Report 23649848 (Version 1)
Quarter: 2024Q1

REPORT INFORMATION
  Report Type: Spontaneous
  Country: US (occurrence: None)
  Receive Date: 20240319
  Receipt Date: 20240319
  Transmission Date: 20240410
  Serious: No
  Sender: FDA-Public Use
  Company Number: US-ROCHE-3496824

PATIENT
  Sex: Female

DRUGS (2)
  1. LUNSUMIO [Suspect]
     Active Substance: MOSUNETUZUMAB-AXGB
     Indication: Follicular lymphoma
     Dosage: YES
     Route: 042
     Dates: start: 20240109
  2. LUNSUMIO [Suspect]
     Active Substance: MOSUNETUZUMAB-AXGB
     Dosage: (CYCLE 1, DAY 15)
     Route: 065
     Dates: start: 20240123

REACTIONS (2)
  - Liver function test increased [Not Recovered/Not Resolved]
  - Headache [Recovered/Resolved]
